APPROVED DRUG PRODUCT: CLARITIN REDITABS
Active Ingredient: LORATADINE
Strength: 5MG
Dosage Form/Route: TABLET, ORALLY DISINTEGRATING;ORAL
Application: N021993 | Product #001
Applicant: BAYER HEALTHCARE LLC
Approved: Dec 12, 2006 | RLD: Yes | RS: Yes | Type: OTC